FAERS Safety Report 11302729 (Version 1)
Quarter: 2015Q3

REPORT INFORMATION
  Report Type: Spontaneous
  Country: US (occurrence: None)
  Receive Date: 20150723
  Receipt Date: 20150723
  Transmission Date: 20151125
  Serious: No
  Sender: FDA-Public Use
  Company Number: None

PATIENT
  Age: 37 Year
  Sex: Female
  Weight: 63.5 kg

DRUGS (1)
  1. DULOXETINE. [Suspect]
     Active Substance: DULOXETINE
     Indication: DEPRESSION
     Dosage: 1 PILL
     Route: 048

REACTIONS (8)
  - Depression [None]
  - Asthenia [None]
  - Product substitution issue [None]
  - Anxiety [None]
  - Paraesthesia [None]
  - Drug effect decreased [None]
  - Restlessness [None]
  - Nervousness [None]

NARRATIVE: CASE EVENT DATE: 20150722
